FAERS Safety Report 6287848-6 (Version None)
Quarter: 2009Q3

REPORT INFORMATION
  Report Type: 
  Country: None (occurrence: None)
  Receive Date: 20090729
  Receipt Date: 20070601
  Transmission Date: 20100115
  Serious: Yes (Other)
  Sender: FDA-Public Use
  Company Number: US-ASTRAZENECA-2006UW25664

PATIENT
  Age: 12253 Day
  Sex: Female
  Weight: 98 kg

DRUGS (15)
  1. SEROQUEL [Suspect]
     Indication: BIPOLAR DISORDER
     Dosage: 25MG -100MG
     Route: 048
     Dates: start: 20010822
  2. SEROQUEL [Suspect]
     Indication: SLEEP DISORDER
     Dosage: 25MG -100MG
     Route: 048
     Dates: start: 20010822
  3. SEROQUEL [Suspect]
     Route: 048
     Dates: start: 20040101
  4. SEROQUEL [Suspect]
     Route: 048
     Dates: start: 20040101
  5. ADIPEX [Concomitant]
     Dates: start: 20050101, end: 20060101
  6. PROZAC [Concomitant]
     Indication: ANXIETY
     Dosage: 20MG -50MG
     Dates: start: 20010409
  7. SONATA [Concomitant]
     Dates: start: 20040514
  8. LITHOBID [Concomitant]
     Dosage: 300MG - 350MG
     Dates: start: 20011117
  9. DEPAKOTE [Concomitant]
     Indication: MOOD ALTERED
     Dates: start: 20030516
  10. GABITRIL [Concomitant]
     Indication: ANXIETY
     Dosage: 2MG -12MG
     Dates: start: 20021202
  11. TRILEPTAL [Concomitant]
     Dates: start: 20010731
  12. PRILOSEC [Concomitant]
     Indication: GASTROOESOPHAGEAL REFLUX DISEASE
     Dates: start: 20010409
  13. NEXIUM [Concomitant]
     Dates: start: 20050914
  14. AMARYL [Concomitant]
     Dates: start: 20030916
  15. TYLENOL [Concomitant]
     Indication: HEADACHE
     Dosage: 3 TABLETS AS AND WHEN REQUIRED
     Dates: start: 20010709

REACTIONS (6)
  - DIABETES MELLITUS [None]
  - DIABETES MELLITUS INADEQUATE CONTROL [None]
  - HYPOGLYCAEMIA [None]
  - INSULIN-REQUIRING TYPE 2 DIABETES MELLITUS [None]
  - NEUROPATHY PERIPHERAL [None]
  - TYPE 2 DIABETES MELLITUS [None]
